FAERS Safety Report 4773136-3 (Version None)
Quarter: 2005Q3

REPORT INFORMATION
  Report Type: 
  Country: None (occurrence: None)
  Receive Date: 20050915
  Receipt Date: 20050915
  Transmission Date: 20060218
  Serious: Yes (Hospitalization, Other)
  Sender: FDA-Public Use
  Company Number: None

PATIENT
  Age: 81 Year
  Sex: Female

DRUGS (7)
  1. PLAVIX [Suspect]
     Indication: CORONARY ARTERY SURGERY
     Dosage: 75 MG  DAILY   PO
     Route: 048
  2. ASPIRIN [Suspect]
     Indication: CORONARY ARTERY DISEASE
     Dosage: 81MG   DAILY   PO
     Route: 048
  3. COUMADIN [Concomitant]
  4. CARDIZEM [Concomitant]
  5. NORVASC [Concomitant]
  6. ALLOPURINOL [Concomitant]
  7. COZAAR [Concomitant]

REACTIONS (3)
  - ANAEMIA [None]
  - ANGINA PECTORIS [None]
  - GASTROINTESTINAL HAEMORRHAGE [None]
